FAERS Safety Report 8951035 (Version 1)
Quarter: 2012Q4

REPORT INFORMATION
  Report Type: 
  Country: US (occurrence: US)
  Receive Date: 20121207
  Receipt Date: 20121207
  Transmission Date: 20130627
  Serious: Yes (Death)
  Sender: FDA-Public Use
  Company Number: US-PFIZER INC-2012306500

PATIENT
  Age: 39 Year
  Sex: Male

DRUGS (2)
  1. XALKORI [Suspect]
     Indication: MALIGNANT NEOPLASM OF TRACHEA
     Dosage: 250 mg, 2x/day
     Dates: start: 20121012
  2. XALKORI [Suspect]
     Indication: LUNG NEOPLASM MALIGNANT

REACTIONS (1)
  - Death [Fatal]
